FAERS Safety Report 24247209 (Version 6)
Quarter: 2025Q3

REPORT INFORMATION
  Report Type: Spontaneous
  Country: US (occurrence: US)
  Receive Date: 20240826
  Receipt Date: 20250816
  Transmission Date: 20251021
  Serious: Yes (Other)
  Sender: ALEXION PHARMACEUTICALS
  Company Number: US-AstraZeneca-2024-273835

PATIENT
  Age: 43 Year
  Sex: Female
  Weight: 73 kg

DRUGS (2)
  1. AIRSUPRA [Suspect]
     Active Substance: ALBUTEROL SULFATE\BUDESONIDE
     Indication: Asthma
     Dates: start: 20240508, end: 20240521
  2. OMEPRAZOLE [Suspect]
     Active Substance: OMEPRAZOLE
     Dosage: 20 MILLIGRAM, QD

REACTIONS (35)
  - Type 2 diabetes mellitus [Unknown]
  - Type 2 diabetes mellitus [Unknown]
  - Abdominal pain [Unknown]
  - Gastritis [Recovered/Resolved]
  - Neutrophil count increased [Unknown]
  - Abdominal pain upper [Unknown]
  - Dyspepsia [Unknown]
  - Pain [Unknown]
  - Dyspepsia [Unknown]
  - Abdominal distension [Unknown]
  - Eructation [Unknown]
  - Diarrhoea [Unknown]
  - Appetite disorder [Unknown]
  - Hyperhidrosis [Unknown]
  - Fatigue [Unknown]
  - Nausea [Unknown]
  - Sleep disorder [Unknown]
  - Back pain [Unknown]
  - Migraine [Unknown]
  - Hypertonic bladder [Unknown]
  - Spinal osteoarthritis [Unknown]
  - Pelvic pain [Unknown]
  - Asthma [Unknown]
  - Respiratory distress [Unknown]
  - Malaise [Unknown]
  - Eye disorder [Unknown]
  - Flushing [Unknown]
  - Asthma [Unknown]
  - Pain in extremity [Unknown]
  - Drug ineffective [Unknown]
  - Swelling [Unknown]
  - Chest discomfort [Unknown]
  - Dyspnoea [Unknown]
  - Cough [Unknown]
  - Wheezing [Unknown]

NARRATIVE: CASE EVENT DATE: 20240518
